FAERS Safety Report 9863062 (Version 1)
Quarter: 2014Q1

REPORT INFORMATION
  Report Type: Spontaneous
  Country: US (occurrence: US)
  Receive Date: 20140203
  Receipt Date: 20140203
  Transmission Date: 20141002
  Serious: No
  Sender: FDA-Public Use
  Company Number: US-B.I. PHARMACEUTICALS,INC./RIDGEFIELD-2014-BI-03487BP

PATIENT
  Age: 64 Year
  Sex: Female
  Weight: 98 kg

DRUGS (10)
  1. IPRATROPIUM BROMIDE NASAL SOLUTION, 0.03% [Suspect]
     Indication: PRODUCT USED FOR UNKNOWN INDICATION
     Dosage: DOSE PER APPLICATION: 0.02%
     Dates: start: 20130615, end: 20130715
  2. XOPENEX HFA [Concomitant]
     Dosage: DOSE PER APPLICATION: CFC FREE 45 MCG/INH AS NEEDED
     Route: 055
     Dates: start: 20120630
  3. ALBUTEROL NEBULIZER [Concomitant]
     Dosage: DOSE PER APPLICATION: 0.083%
     Dates: start: 20130101, end: 20140106
  4. LEVOTHYROXINE [Concomitant]
     Route: 048
     Dates: start: 20130101
  5. SINGULAIR [Concomitant]
     Route: 048
     Dates: start: 20130101
  6. TYLENOL WITH CODEINE #3 [Concomitant]
     Dosage: DOSE PER APPLICATION:300MG-30 MG
     Dates: start: 20130101
  7. LORATADINE [Concomitant]
     Route: 048
     Dates: start: 20130101
  8. PREDNISONE [Concomitant]
     Indication: IDIOPATHIC PULMONARY FIBROSIS
  9. N-ACETYLCYSTEINE NAC [Concomitant]
     Indication: IDIOPATHIC PULMONARY FIBROSIS
  10. NEXIUM [Concomitant]
     Dates: end: 20130516

REACTIONS (1)
  - Drug ineffective [Unknown]
